FAERS Safety Report 8614554-2 (Version None)
Quarter: 2012Q3

REPORT INFORMATION
  Report Type: 
  Country: None (occurrence: None)
  Receive Date: 20120810
  Receipt Date: 20120727
  Transmission Date: 20120928
  Serious: Yes (Hospitalization)
  Sender: FDA-Public Use
  Company Number: NSR_00604_2012

PATIENT
  Age: 1 Month
  Sex: Female

DRUGS (3)
  1. PROPRANOLOL [Suspect]
     Indication: HAEMANGIOMA
     Dosage: 2 MG/KG/DAY ORALLY DIVIDED INTO 2 DOSES ORAL), (2 MG/KG PER DAY ORALLY DIVIDED INTO 4 DOSES ORAL)
     Route: 048
  2. RANITIDINE [Concomitant]
  3. DOMPERIDONE [Concomitant]

REACTIONS (5)
  - HAEMANGIOMA [None]
  - ELECTROLYTE IMBALANCE [None]
  - HYPERKALAEMIA [None]
  - TUMOUR LYSIS SYNDROME [None]
  - HYPERPHOSPHATAEMIA [None]
